FAERS Safety Report 9406088 (Version 2)
Quarter: 2014Q1

REPORT INFORMATION
  Report Type: Spontaneous
  Country: US (occurrence: US)
  Receive Date: 20130717
  Receipt Date: 20140124
  Transmission Date: 20141002
  Serious: No
  Sender: FDA-Public Use
  Company Number: US-009507513-1306USA014293

PATIENT
  Age: 64 Year
  Sex: Female

DRUGS (7)
  1. ZIOPTAN [Suspect]
     Indication: GLAUCOMA
     Dosage: 1 DROP PER EYE DAILY
     Route: 047
     Dates: start: 201212
  2. AZOPT [Concomitant]
  3. SYNTHROID [Concomitant]
  4. OXYCONTIN [Concomitant]
  5. BACLOFEN [Concomitant]
  6. KLONOPIN [Concomitant]
  7. VIIBRYD [Concomitant]

REACTIONS (3)
  - Eyelid margin crusting [Not Recovered/Not Resolved]
  - Headache [Not Recovered/Not Resolved]
  - Eye pain [Not Recovered/Not Resolved]
